FAERS Safety Report 8780331 (Version 1)
Quarter: 2012Q4

REPORT INFORMATION
  Report Type: Spontaneous
  Country: US (occurrence: None)
  Receive Date: 20120905
  Receipt Date: 20120905
  Transmission Date: 20130627
  Serious: Yes (Life-Threatening)
  Sender: FDA-Public Use
  Company Number: None

PATIENT
  Age: 55 Year
  Sex: Female

DRUGS (2)
  1. PEGASYS [Suspect]
     Dates: start: 20120424
  2. RIBAVIRIN [Suspect]
     Route: 048
     Dates: start: 20120424

REACTIONS (2)
  - Vomiting [None]
  - Transfusion [None]
